FAERS Safety Report 16789112 (Version 6)
Quarter: 2020Q3

REPORT INFORMATION
  Report Type: Report from Study
  Country: None (occurrence: US)
  Receive Date: 20190910
  Receipt Date: 20200807
  Transmission Date: 20201102
  Serious: Yes (Hospitalization)
  Sender: FDA-Public Use
  Company Number: US-ABBVIE-19K-163-2916203-00

PATIENT
  Age: 73 Year
  Sex: Female
  Weight: 58.11 kg

DRUGS (5)
  1. VITAMIN D [Concomitant]
     Active Substance: VITAMIN D NOS
     Indication: SUPPLEMENTATION THERAPY
  2. HUMIRA [Suspect]
     Active Substance: ADALIMUMAB
     Indication: CROHN^S DISEASE
     Route: 058
     Dates: start: 201504
  3. NASAL SPRAY II [Concomitant]
     Indication: NASOPHARYNGITIS
  4. HUMIRA [Suspect]
     Active Substance: ADALIMUMAB
     Route: 058
  5. CLARITIN [Concomitant]
     Active Substance: LORATADINE
     Indication: HYPERSENSITIVITY

REACTIONS (9)
  - Blood urine present [Recovered/Resolved]
  - Procedural pain [Recovering/Resolving]
  - Fatigue [Recovered/Resolved]
  - Vulvovaginal dryness [Recovering/Resolving]
  - Nephroptosis [Recovering/Resolving]
  - Weight decreased [Recovered/Resolved]
  - Ureteral disorder [Recovered/Resolved]
  - Prolapse [Recovering/Resolving]
  - Renal injury [Recovered/Resolved with Sequelae]

NARRATIVE: CASE EVENT DATE: 20190820
